FAERS Safety Report 5307693-5 (Version None)
Quarter: 2007Q2

REPORT INFORMATION
  Report Type: 
  Country: None (occurrence: None)
  Receive Date: 20070419
  Receipt Date: 20070403
  Transmission Date: 20071010
  Serious: Yes (Other)
  Sender: FDA-Public Use
  Company Number: 2007JP001504

PATIENT
  Age: 66 Year

DRUGS (8)
  1. PROGRAF [Suspect]
     Indication: RENAL TRANSPLANT
     Dates: start: 20060904, end: 20060911
  2. OCTAGAM [Suspect]
     Dosage: 40 G, TOTAL DOSE, UNKNOWN
     Dates: start: 20060830, end: 20060910
  3. CELLCEPT (MYCOPHENOLATE MOFETIL) FORMULATION UNKNOWN [Concomitant]
  4. SOLONE (PREDNISOLONE) FORMULATION UNKNOWN [Concomitant]
  5. RESPRIM (SULFAMETHOXAZOLE, TRIMETHOPRIM) FORMULATION UNKNOWN [Concomitant]
  6. GANCICLOVIR (GANCICLOVIR) FORMULATION UNKNOWN [Concomitant]
  7. VALCYTE (VALGANCICLOVIR HYDROCHLORIDE) FORMULATION UNKNOWN [Concomitant]
  8. RANIHEXAL (RANITIDINE HYDROCHLORIDE) FORMULATION UNKNOWN [Concomitant]

REACTIONS (2)
  - ARTERIAL THROMBOSIS [None]
  - TRANSPLANT FAILURE [None]
